FAERS Safety Report 13369394 (Version 1)
Quarter: 2017Q1

REPORT INFORMATION
  Report Type: Spontaneous
  Country: US (occurrence: US)
  Receive Date: 20170324
  Receipt Date: 20170324
  Transmission Date: 20170429
  Serious: No
  Sender: FDA-Public Use
  Company Number: US-ROCHE-1512563

PATIENT
  Age: 45 Year
  Sex: Male

DRUGS (3)
  1. XOLAIR [Suspect]
     Active Substance: OMALIZUMAB
     Indication: URTICARIA
     Route: 065
     Dates: start: 201407
  2. SINGULAIR [Concomitant]
     Active Substance: MONTELUKAST SODIUM
  3. PEPCID [Concomitant]
     Active Substance: FAMOTIDINE

REACTIONS (1)
  - Drug ineffective [Unknown]
